FAERS Safety Report 7216164-0 (Version None)
Quarter: 2011Q1

REPORT INFORMATION
  Report Type: 
  Country: None (occurrence: None)
  Receive Date: 20110105
  Receipt Date: 20110105
  Transmission Date: 20110831
  Serious: Yes (Hospitalization)
  Sender: FDA-Public Use
  Company Number: None

PATIENT
  Age: 48 Year
  Sex: Female
  Weight: 66.5 kg

DRUGS (2)
  1. PREDNISONE [Concomitant]
  2. KINERET [Suspect]
     Indication: CHRONIC INFANTILE NEUROLOGICAL CUTANEOUS AND ARTICULAR SYNDROME
     Dosage: 1.84ML SUBCUTANEOUS
     Route: 058
     Dates: start: 20100716

REACTIONS (1)
  - BREAST CANCER [None]
